FAERS Safety Report 5217858-9 (Version None)
Quarter: 2007Q1

REPORT INFORMATION
  Report Type: 
  Country: None (occurrence: None)
  Receive Date: 20070124
  Receipt Date: 20070120
  Transmission Date: 20070707
  Serious: Yes (Life-Threatening, Hospitalization)
  Sender: FDA-Public Use
  Company Number: IR-SHR-IR-2007-001887

PATIENT
  Age: 34 Year
  Sex: Male
  Weight: 75 kg

DRUGS (1)
  1. ULTRAVIST 300 [Suspect]
     Dosage: 60 ML, 1 DOSE
     Route: 042
     Dates: start: 20061206, end: 20061206

REACTIONS (2)
  - CYANOSIS [None]
  - RESPIRATORY DISTRESS [None]
